FAERS Safety Report 16393734 (Version 2)
Quarter: 2019Q2

REPORT INFORMATION
  Report Type: Spontaneous
  Country: TR (occurrence: TR)
  Receive Date: 20190605
  Receipt Date: 20190612
  Transmission Date: 20190711
  Serious: Yes (Other)
  Sender: FDA-Public Use
  Company Number: TR-AMGEN-TURSP2019088691

PATIENT
  Age: 87 Year
  Sex: Female
  Weight: 62 kg

DRUGS (4)
  1. NOOTROPIL [Concomitant]
     Active Substance: PIRACETAM
     Indication: VERTIGO
     Dosage: 800 MILLIGRAM
  2. TENSINOR [Concomitant]
     Indication: HYPERTENSION
     Dosage: 1 UNIT
  3. PROLIA [Suspect]
     Active Substance: DENOSUMAB
     Indication: OSTEOPOROSIS
     Dosage: 60 MILLIGRAM, Q6MO
     Route: 058
     Dates: start: 20190515
  4. BENEXOL [CYANOCOBALAMIN;PYRIDOXINE HYDROCHLORIDE;THIAMINE HYDROCHLORID [Concomitant]
     Indication: VITAMIN B12 DEFICIENCY
     Dosage: 1 UNIT

REACTIONS (1)
  - Generalised oedema [Recovering/Resolving]

NARRATIVE: CASE EVENT DATE: 20190516
